FAERS Safety Report 15290915 (Version 1)
Quarter: 2018Q3

REPORT INFORMATION
  Report Type: Spontaneous
  Country: US (occurrence: US)
  Receive Date: 20180817
  Receipt Date: 20180817
  Transmission Date: 20181010
  Serious: Yes (Other)
  Sender: FDA-Public Use
  Company Number: US-TARO-2018TAR00590

PATIENT
  Age: 18 Year
  Sex: Female
  Weight: 96.15 kg

DRUGS (10)
  1. NORTRIPTYLINE HCL CAPSULES 25 MG [Suspect]
     Active Substance: NORTRIPTYLINE HYDROCHLORIDE
     Indication: MIGRAINE
     Dosage: 25 MG, 1X/DAY
     Route: 048
     Dates: start: 2018, end: 201805
  2. EXCEDRIN (MIGRAINE) [Concomitant]
  3. VITAMIN D [Concomitant]
     Active Substance: CHOLECALCIFEROL
  4. NORTRIPTYLINE HCL CAPSULES 10 MG [Suspect]
     Active Substance: NORTRIPTYLINE HYDROCHLORIDE
     Indication: MIGRAINE
     Dosage: 20 MG, 1X/DAY
     Route: 048
     Dates: start: 20180313, end: 2018
  5. NORTRIPTYLINE HCL CAPSULES 10 MG [Suspect]
     Active Substance: NORTRIPTYLINE HYDROCHLORIDE
     Indication: HEADACHE
  6. NORTRIPTYLINE HCL CAPSULES 25 MG [Suspect]
     Active Substance: NORTRIPTYLINE HYDROCHLORIDE
     Indication: HEADACHE
  7. NORTRIPTYLINE HCL CAPSULES 50 MG [Suspect]
     Active Substance: NORTRIPTYLINE HYDROCHLORIDE
     Indication: MIGRAINE
     Dosage: 50 MG, 1X/DAY
     Route: 048
     Dates: start: 2018, end: 2018
  8. NORTRIPTYLINE HCL CAPSULES 50 MG [Suspect]
     Active Substance: NORTRIPTYLINE HYDROCHLORIDE
     Indication: HEADACHE
  9. METFORMIN [Concomitant]
     Active Substance: METFORMIN HYDROCHLORIDE
  10. PRILOSEC [Concomitant]
     Active Substance: OMEPRAZOLE MAGNESIUM

REACTIONS (12)
  - Suicidal ideation [Unknown]
  - Hallucination, auditory [Not Recovered/Not Resolved]
  - Migraine [Unknown]
  - Disorientation [Unknown]
  - Posture abnormal [Unknown]
  - Dizziness [Unknown]
  - Psychotic disorder [Unknown]
  - Drug ineffective for unapproved indication [Recovered/Resolved]
  - Homicidal ideation [Unknown]
  - Crying [Not Recovered/Not Resolved]
  - Movement disorder [Not Recovered/Not Resolved]
  - Personality change [Unknown]

NARRATIVE: CASE EVENT DATE: 2018
